FAERS Safety Report 10284060 (Version 4)
Quarter: 2014Q4

REPORT INFORMATION
  Report Type: Spontaneous
  Country: US (occurrence: US)
  Receive Date: 20140708
  Receipt Date: 20141223
  Transmission Date: 20150528
  Serious: No
  Sender: FDA-Public Use
  Company Number: US-PFIZER INC-2014181833

PATIENT
  Age: 68 Year
  Sex: Female
  Weight: 71 kg

DRUGS (24)
  1. LISINOPRIL. [Concomitant]
     Active Substance: LISINOPRIL
     Indication: HYPERTENSION
     Dosage: 10 MG 2 TABLETS, AS NEEDED ONCE DAILY
  2. ASPIRIN. [Concomitant]
     Active Substance: ASPIRIN
     Dosage: 81 MG, DAILY
  3. VITAMIN D2 [Concomitant]
     Active Substance: ERGOCALCIFEROL
     Dosage: 1.25 MG, ONCE WEEKLY
  4. CLONIDINE. [Concomitant]
     Active Substance: CLONIDINE
     Indication: HYPERTENSION
     Dosage: 0.1 MG, AS NEEDED
  5. RESTASIS [Concomitant]
     Active Substance: CYCLOSPORINE
     Dosage: 1 GTT EACH EYE, 2X/DAY
     Route: 047
  6. NORVASC [Concomitant]
     Active Substance: AMLODIPINE BESYLATE
     Dosage: UNK, DAILY
  7. CITALOPRAM [Concomitant]
     Active Substance: CITALOPRAM HYDROBROMIDE
     Dosage: UNK
  8. DILAUDID [Concomitant]
     Active Substance: HYDROMORPHONE HYDROCHLORIDE
     Indication: PAIN
     Dosage: 2 MG, EVERY 4 HOURS AS NEEDED
  9. MAXITROL [Concomitant]
     Active Substance: DEXAMETHASONE\NEOMYCIN SULFATE\POLYMYXIN B SULFATE
     Indication: DRY EYE
     Dosage: 1 APPLICATION ON RIGHT EYE, 1X/DAY
     Route: 047
  10. GABAPENTIN. [Concomitant]
     Active Substance: GABAPENTIN
     Dosage: 300 MG, 3X/DAY
  11. REMERON [Concomitant]
     Active Substance: MIRTAZAPINE
     Dosage: 45 MG, DAILY (AT NIGHT)
  12. DESONIDE. [Concomitant]
     Active Substance: DESONIDE
     Indication: RASH
     Dosage: KETOCONAZOLE 2% AND DESONIDE 0.05%, MIX EQUAL PARTS OF BOTH CREAMS, 2X/DAY
     Route: 061
  13. ZEGERID [Concomitant]
     Active Substance: OMEPRAZOLE\SODIUM BICARBONATE
     Dosage: 40 MG, 2X/DAY
  14. FENTANYL. [Concomitant]
     Active Substance: FENTANYL
     Dosage: 100 UG, CHANGE EVERY 72 HOURS
  15. ZOFRAN [Concomitant]
     Active Substance: ONDANSETRON HYDROCHLORIDE
     Indication: NAUSEA
     Dosage: 8 MG, EVERY 8 HOURS AS NEEDED
  16. LOMOTIL [Concomitant]
     Active Substance: ATROPINE SULFATE\DIPHENOXYLATE HYDROCHLORIDE
     Indication: DIARRHOEA
     Dosage: 2.5 MG 2 TABLETS, AS NEEDED 4 TIMES DAILY
  17. SUTENT [Suspect]
     Active Substance: SUNITINIB MALATE
     Indication: BLADDER CANCER
     Dosage: 50 MG, EVERY OTHER DAY
     Route: 048
  18. SUTENT [Suspect]
     Active Substance: SUNITINIB MALATE
     Indication: URETHRAL CANCER
     Dosage: 50 MG, DAILY
     Dates: end: 201408
  19. SPIRONOLACTONE. [Concomitant]
     Active Substance: SPIRONOLACTONE
     Dosage: 50 MG, 1X/DAY
  20. SODIUM CHLORIDE. [Concomitant]
     Active Substance: SODIUM CHLORIDE
     Dosage: 1000 MG, 2X/DAY
  21. KLONOPIN [Concomitant]
     Active Substance: CLONAZEPAM
     Dosage: UNK
  22. SYNTHROID [Concomitant]
     Active Substance: LEVOTHYROXINE SODIUM
     Dosage: 125 UG, 1X/DAY
  23. COLACE [Concomitant]
     Active Substance: DOCUSATE SODIUM
     Dosage: 100 MG 3 PILLS, DAILY (AT BEDTIME)
  24. KETOCONAZOLE. [Concomitant]
     Active Substance: KETOCONAZOLE
     Indication: RASH
     Dosage: KETOCONAZOLE 2% AND DESONIDE 0.05%, MIX EQUAL PARTS OF BOTH CREAMS, 2X/DAY
     Route: 061

REACTIONS (7)
  - Blood pressure increased [Recovering/Resolving]
  - Product use issue [Unknown]
  - Diarrhoea [Unknown]
  - Constipation [Unknown]
  - Skin lesion [Unknown]
  - Stomatitis [Unknown]
  - Pain in extremity [Unknown]
